FAERS Safety Report 6679805-2 (Version None)
Quarter: 2010Q2

REPORT INFORMATION
  Report Type: 
  Country: None (occurrence: None)
  Receive Date: 20100413
  Receipt Date: 20090820
  Transmission Date: 20101027
  Serious: No
  Sender: FDA-Public Use
  Company Number: US-ASTRAZENECA-2009SE09173

PATIENT
  Sex: Female

DRUGS (5)
  1. TENORMIN [Suspect]
     Route: 048
     Dates: start: 20060801
  2. TENORMIN [Suspect]
     Route: 048
  3. TENORMIN [Suspect]
     Route: 048
  4. CELEXA [Concomitant]
  5. PRINIVIL [Concomitant]

REACTIONS (3)
  - DRUG ADMINISTRATION ERROR [None]
  - DRY MOUTH [None]
  - DYSPNOEA [None]
